FAERS Safety Report 24243662 (Version 1)
Quarter: 2024Q3

REPORT INFORMATION
  Report Type: Spontaneous
  Country: PT (occurrence: PT)
  Receive Date: 20240823
  Receipt Date: 20240823
  Transmission Date: 20241017
  Serious: Yes (Other)
  Sender: SEBELA
  Company Number: PT-SEBELA IRELAND LIMITED-2024SEB00056

PATIENT
  Age: 78 Year
  Sex: Female

DRUGS (1)
  1. ATROPINE [Suspect]
     Active Substance: ATROPINE
     Indication: Presyncope
     Dosage: 0.5 MG
     Route: 042
     Dates: start: 20200730

REACTIONS (2)
  - Acute pulmonary oedema [Recovered/Resolved]
  - Hypertensive emergency [Recovered/Resolved]

NARRATIVE: CASE EVENT DATE: 20200730
